FAERS Safety Report 7245042-6 (Version None)
Quarter: 2011Q1

REPORT INFORMATION
  Report Type: 
  Country: None (occurrence: None)
  Receive Date: 20110118
  Receipt Date: 20110106
  Transmission Date: 20110831
  Serious: Yes (Other)
  Sender: FDA-Public Use
  Company Number: 024960

PATIENT
  Sex: Female
  Weight: 83.9 kg

DRUGS (8)
  1. CIMZIA [Suspect]
     Indication: CROHN'S DISEASE
     Dosage: (400 MG 1X/2 WEEKS SUBCUTANEOUS)
     Route: 058
     Dates: start: 20101001
  2. VESICARE [Concomitant]
  3. TRILEPTAL [Concomitant]
  4. PREVACID [Concomitant]
  5. CYMBALTA [Concomitant]
  6. ABILIFY [Concomitant]
  7. M.V.I. [Concomitant]
  8. ATIVAN [Concomitant]

REACTIONS (7)
  - CHOLECYSTECTOMY [None]
  - INCISION SITE COMPLICATION [None]
  - WOUND DEHISCENCE [None]
  - PYREXIA [None]
  - OFF LABEL USE [None]
  - MALAISE [None]
  - HAEMATOMA [None]
